FAERS Safety Report 5795240-3 (Version None)
Quarter: 2008Q2

REPORT INFORMATION
  Report Type: 
  Country: None (occurrence: None)
  Receive Date: 20080630
  Receipt Date: 20080623
  Transmission Date: 20081010
  Serious: Yes (Hospitalization, Other)
  Sender: FDA-Public Use
  Company Number: US-AMGEN-QUU287772

PATIENT
  Sex: Male
  Weight: 15 kg

DRUGS (2)
  1. NEUPOGEN [Suspect]
     Indication: DRUG USE FOR UNKNOWN INDICATION
     Route: 058
     Dates: start: 20071201
  2. CREON [Concomitant]

REACTIONS (4)
  - BLOOD COUNT ABNORMAL [None]
  - CELLULITIS [None]
  - NEUTROPENIA [None]
  - PSEUDOMONAS INFECTION [None]
